FAERS Safety Report 7753067-7 (Version None)
Quarter: 2011Q3

REPORT INFORMATION
  Report Type: 
  Country: None (occurrence: None)
  Receive Date: 20110915
  Receipt Date: 20110908
  Transmission Date: 20111222
  Serious: Yes (Other)
  Sender: FDA-Public Use
  Company Number: US-NOVOPROD-330790

PATIENT
  Sex: Female
  Weight: 101.13 kg

DRUGS (4)
  1. NOVOLOG [Suspect]
     Indication: TYPE 2 DIABETES MELLITUS
     Dosage: SLIDING SCALE
     Route: 058
     Dates: start: 20110101, end: 20110701
  2. METFORMIN HYDROCHLORIDE [Concomitant]
     Indication: TYPE 2 DIABETES MELLITUS
  3. LANTUS [Concomitant]
     Indication: TYPE 2 DIABETES MELLITUS
  4. GLIPIZIDE [Concomitant]
     Indication: TYPE 2 DIABETES MELLITUS

REACTIONS (20)
  - PALPITATIONS [None]
  - MALAISE [None]
  - MIGRAINE [None]
  - NIGHT SWEATS [None]
  - CHEST DISCOMFORT [None]
  - CONFUSIONAL STATE [None]
  - GAIT DISTURBANCE [None]
  - HEART RATE INCREASED [None]
  - DIZZINESS [None]
  - DISTURBANCE IN ATTENTION [None]
  - MOOD ALTERED [None]
  - ASTHENIA [None]
  - DRUG EFFECT DECREASED [None]
  - INCREASED APPETITE [None]
  - BREAST PAIN [None]
  - WEIGHT DECREASED [None]
  - BLOOD GLUCOSE INCREASED [None]
  - CARDIAC DISORDER [None]
  - VISION BLURRED [None]
  - FATIGUE [None]
